FAERS Safety Report 19006819 (Version 1)
Quarter: 2021Q1

REPORT INFORMATION
  Report Type: Spontaneous
  Country: US (occurrence: US)
  Receive Date: 20210313
  Receipt Date: 20210313
  Transmission Date: 20210420
  Serious: Yes (Life-Threatening, Hospitalization)
  Sender: FDA-Public Use
  Company Number: None

PATIENT
  Age: 33 Year
  Sex: Female
  Weight: 103.5 kg

DRUGS (4)
  1. SINGULAIR [Concomitant]
     Active Substance: MONTELUKAST SODIUM
  2. PRENATAL VITAMIN [Concomitant]
     Active Substance: VITAMINS
  3. PROGESTERONE ONLY BIRTH CONTROL; MINI PILL [Concomitant]
     Active Substance: PROGESTERONE
  4. EQUATE NITETIME SEVERE [Suspect]
     Active Substance: ACETAMINOPHEN\DEXTROMETHORPHAN HYDROBROMIDE\DOXYLAMINE SUCCINATE\PHENYLEPHRINE HYDROCHLORIDE

REACTIONS (9)
  - Drug hypersensitivity [None]
  - Heart rate increased [None]
  - Pruritus [None]
  - Urticaria [None]
  - Rash erythematous [None]
  - Erythema [None]
  - Presyncope [None]
  - Tremor [None]
  - Swelling face [None]

NARRATIVE: CASE EVENT DATE: 20210311
